FAERS Safety Report 9701638 (Version 2)
Quarter: 2013Q4

REPORT INFORMATION
  Report Type: Spontaneous
  Country: US (occurrence: US)
  Receive Date: 20131119
  Receipt Date: 20131119
  Transmission Date: 20140711
  Serious: Yes (Other)
  Sender: FDA-Public Use
  Company Number: US-ORACLE-2011S1000070

PATIENT
  Age: 42 Year
  Sex: Male
  Weight: 113.4 kg

DRUGS (12)
  1. KRYSTEXXA INJECTION [Suspect]
     Indication: GOUT
     Route: 042
     Dates: start: 20110825, end: 20110825
  2. KRYSTEXXA INJECTION [Suspect]
     Indication: GOUT
     Route: 042
     Dates: start: 20110907, end: 20110907
  3. KRYSTEXXA INJECTION [Suspect]
     Indication: GOUT
     Route: 042
     Dates: start: 20110804, end: 20110804
  4. ULORIC [Concomitant]
     Indication: PRODUCT USED FOR UNKNOWN INDICATION
  5. ALLOPURINOL [Concomitant]
     Indication: PRODUCT USED FOR UNKNOWN INDICATION
  6. FLEXERIL /00428402/ [Concomitant]
     Indication: PRODUCT USED FOR UNKNOWN INDICATION
  7. VITAMIN B12 [Concomitant]
     Indication: PRODUCT USED FOR UNKNOWN INDICATION
  8. PERCOCET /00867901/ [Concomitant]
     Indication: PRODUCT USED FOR UNKNOWN INDICATION
  9. BENADRYL /00945501/ [Concomitant]
     Indication: PREMEDICATION
     Dates: start: 20110804
  10. BENADRYL /00945501/ [Concomitant]
     Indication: PREMEDICATION
  11. SOLU-MEDROL [Concomitant]
     Indication: PREMEDICATION
     Dates: start: 20110804
  12. TYLENOL /00020001/ [Concomitant]
     Indication: PREMEDICATION
     Dates: start: 20110804

REACTIONS (2)
  - Infusion related reaction [Recovered/Resolved]
  - Therapeutic response decreased [Unknown]
